FAERS Safety Report 6234339-4 (Version None)
Quarter: 2009Q2

REPORT INFORMATION
  Report Type: 
  Country: None (occurrence: None)
  Receive Date: 20090618
  Receipt Date: 20090609
  Transmission Date: 20091009
  Serious: Yes (Other)
  Sender: FDA-Public Use
  Company Number: GB-PFIZER INC-2009210666

PATIENT
  Age: 41 Year

DRUGS (4)
  1. MARAVIROC [Suspect]
     Indication: HIV INFECTION
     Dosage: 600 MG, 2X/DAY
     Route: 048
     Dates: start: 20090406, end: 20090412
  2. ETRAVIRINE [Concomitant]
     Indication: HIV INFECTION
     Dosage: 200 MG, 2X/DAY
     Dates: start: 20081118
  3. ABACAVIR [Concomitant]
     Indication: HIV INFECTION
     Dosage: UNK
     Dates: start: 20081029
  4. PENTAMIDINE [Concomitant]
     Indication: PNEUMOCYSTIS JIROVECI PNEUMONIA
     Dosage: 300 MG, MONTHLY

REACTIONS (4)
  - DERMATITIS [None]
  - PRURITUS [None]
  - RASH GENERALISED [None]
  - RASH PAPULAR [None]
